FAERS Safety Report 14765634 (Version 6)
Quarter: 2018Q3

REPORT INFORMATION
  Report Type: Report from Study
  Country: US (occurrence: US)
  Receive Date: 20180416
  Receipt Date: 20180904
  Transmission Date: 20181010
  Serious: Yes (Death, Hospitalization, Other)
  Sender: FDA-Public Use
  Company Number: US-PFIZER INC-2018137532

PATIENT
  Age: 70 Year
  Sex: Female

DRUGS (3)
  1. SUTENT [Suspect]
     Active Substance: SUNITINIB MALATE
     Dosage: 37.5 MG, DAILY
     Route: 048
     Dates: start: 20180329
  2. SUTENT [Suspect]
     Active Substance: SUNITINIB MALATE
     Indication: GASTROINTESTINAL STROMAL TUMOUR
     Dosage: 50 MG, CYCLIC (DAILY, 4 WEEKS ON/ 2 WEEKS OFF)
     Route: 048
     Dates: start: 20180329, end: 20180426
  3. SUTENT [Suspect]
     Active Substance: SUNITINIB MALATE
     Dosage: 37.5 MG, CYCLIC (DAILY, 4 WEEKS ON AND 2 WEEKS OFF)
     Route: 048
     Dates: start: 20180520

REACTIONS (21)
  - Pulmonary oedema [Unknown]
  - Nausea [Not Recovered/Not Resolved]
  - Asthenia [Not Recovered/Not Resolved]
  - Stomatitis [Unknown]
  - Constipation [Unknown]
  - Blood pressure fluctuation [Recovered/Resolved]
  - Fungal infection [Unknown]
  - Death [Fatal]
  - Dyspnoea [Unknown]
  - Pain of skin [Unknown]
  - Vision blurred [Unknown]
  - Renal disorder [Unknown]
  - Weight decreased [Unknown]
  - Pneumonia [Unknown]
  - Thrombosis [Unknown]
  - Rash [Unknown]
  - Oropharyngeal pain [Unknown]
  - Dry skin [Unknown]
  - Hypertension [Recovered/Resolved]
  - Fatigue [Unknown]
  - Vomiting [Unknown]

NARRATIVE: CASE EVENT DATE: 2018
